FAERS Safety Report 11381941 (Version 1)
Quarter: 2015Q3

REPORT INFORMATION
  Report Type: Spontaneous
  Country: KR (occurrence: KR)
  Receive Date: 20150814
  Receipt Date: 20150814
  Transmission Date: 20151125
  Serious: Yes (Hospitalization)
  Sender: FDA-Public Use
  Company Number: KR-ASTRAZENECA-2015SE77444

PATIENT

DRUGS (4)
  1. FORXIGA [Suspect]
     Active Substance: DAPAGLIFLOZIN
     Route: 048
  2. STATIN [Concomitant]
     Active Substance: UNSPECIFIED INGREDIENT
  3. UNSPECIFIED ORAL ANTIDIABETIC AGENT [Concomitant]
     Route: 048
  4. INSULIN [Concomitant]
     Active Substance: INSULIN NOS

REACTIONS (1)
  - Liver function test abnormal [Recovered/Resolved]
